FAERS Safety Report 12104628 (Version 3)
Quarter: 2016Q2

REPORT INFORMATION
  Report Type: Report from Study
  Country: US (occurrence: US)
  Receive Date: 20160223
  Receipt Date: 20160413
  Transmission Date: 20160815
  Serious: Yes (Hospitalization, Other)
  Sender: FDA-Public Use
  Company Number: US-BAYER-2014-160053

PATIENT
  Age: 65 Year
  Sex: Male
  Weight: 81.63 kg

DRUGS (10)
  1. ADEMPAS [Suspect]
     Active Substance: RIOCIGUAT
     Indication: PULMONARY ARTERIAL HYPERTENSION
     Dosage: UNK
     Route: 048
     Dates: start: 20141003
  2. ADEMPAS [Suspect]
     Active Substance: RIOCIGUAT
     Indication: PULMONARY ARTERIAL HYPERTENSION
     Dosage: 1 MG, TID
     Route: 048
     Dates: start: 20141007
  3. ADEMPAS [Suspect]
     Active Substance: RIOCIGUAT
     Indication: PULMONARY ARTERIAL HYPERTENSION
     Dosage: 2.5 MG, TID
     Route: 048
  4. COUMADIN [Suspect]
     Active Substance: WARFARIN SODIUM
  5. TRACLEER [Concomitant]
     Active Substance: BOSENTAN
  6. ADEMPAS [Suspect]
     Active Substance: RIOCIGUAT
     Indication: PULMONARY ARTERIAL HYPERTENSION
     Dosage: 2.5 MG, TID
     Route: 048
  7. OPSUMIT [Concomitant]
     Active Substance: MACITENTAN
  8. ADEMPAS [Suspect]
     Active Substance: RIOCIGUAT
     Indication: PULMONARY ARTERIAL HYPERTENSION
     Dosage: 2.5 MG, TID
     Route: 048
  9. ADEMPAS [Suspect]
     Active Substance: RIOCIGUAT
     Indication: PULMONARY ARTERIAL HYPERTENSION
     Dosage: 2.5 MG, TID
     Route: 048
  10. ADEMPAS [Suspect]
     Active Substance: RIOCIGUAT
     Indication: PULMONARY ARTERIAL HYPERTENSION
     Dosage: 2.5 MG, TID
     Route: 048

REACTIONS (22)
  - Dyspnoea [None]
  - Ascites [Unknown]
  - Aphonia [None]
  - Speech disorder [None]
  - Oedema peripheral [Unknown]
  - Blood glucose decreased [Unknown]
  - Dysphagia [None]
  - Fluid intake reduced [Unknown]
  - Peripheral swelling [Unknown]
  - Fluid overload [Unknown]
  - Epistaxis [Recovered/Resolved]
  - Gastrooesophageal reflux disease [None]
  - Cardiac failure high output [Unknown]
  - Thyroid disorder [None]
  - Transfusion [None]
  - Dyspnoea [None]
  - Eating disorder [None]
  - Blood urine present [Recovered/Resolved]
  - Fall [Unknown]
  - Sexual dysfunction [None]
  - Dyspnoea exertional [Unknown]
  - Feeding disorder [Unknown]

NARRATIVE: CASE EVENT DATE: 201507
